FAERS Safety Report 10610603 (Version 1)
Quarter: 2014Q4

REPORT INFORMATION
  Report Type: Spontaneous
  Country: US (occurrence: None)
  Receive Date: 20141124
  Receipt Date: 20141124
  Transmission Date: 20150529
  Serious: Yes (Hospitalization)
  Sender: FDA-Public Use
  Company Number: 2014-20765

PATIENT
  Age: 50 Year
  Sex: Female

DRUGS (9)
  1. PLAVIX (CLOPIDOGREL BISULFATE) [Concomitant]
  2. NEXIUM [Concomitant]
     Active Substance: ESOMEPRAZOLE MAGNESIUM
  3. PRAVASTATIN [Concomitant]
     Active Substance: PRAVASTATIN\PRAVASTATIN SODIUM
  4. ARCALYST [Suspect]
     Active Substance: RILONACEPT
     Indication: FAMILIAL MEDITERRANEAN FEVER
     Dates: start: 201406, end: 201406
  5. FUROSEMIDE. [Concomitant]
     Active Substance: FUROSEMIDE
  6. PROCARDIA [Concomitant]
     Active Substance: NIFEDIPINE
  7. LOSARTAN [Concomitant]
     Active Substance: LOSARTAN
  8. COLCHINE [Concomitant]
     Active Substance: COLCHICINE
  9. RANEXA (RANOLAZINE) [Concomitant]

REACTIONS (2)
  - Hypoaesthesia [None]
  - Off label use [None]
